FAERS Safety Report 7917580-1 (Version None)
Quarter: 2011Q4

REPORT INFORMATION
  Report Type: 
  Country: None (occurrence: None)
  Receive Date: 20111116
  Receipt Date: 20111101
  Transmission Date: 20120403
  Serious: Yes (Hospitalization, Other)
  Sender: FDA-Public Use
  Company Number: CA-ROCHE-764130

PATIENT
  Sex: Male
  Weight: 69.008 kg

DRUGS (6)
  1. CALCIUM [Concomitant]
  2. MULTI-VITAMIN [Concomitant]
  3. PAIN KILLER (UNK INGREDIENTS) [Concomitant]
  4. AVASTIN [Suspect]
     Indication: COLON CANCER METASTATIC
     Dosage: FORM :INFUSION
     Route: 042
     Dates: start: 20100305, end: 20110325
  5. AVASTIN [Suspect]
     Route: 042
  6. VITAMIN B COMPLEX CAP [Concomitant]

REACTIONS (4)
  - METASTASES TO LIVER [None]
  - OPEN WOUND [None]
  - GASTROINTESTINAL DISORDER [None]
  - METASTASES TO SOFT TISSUE [None]
